FAERS Safety Report 7668101-2 (Version None)
Quarter: 2011Q3

REPORT INFORMATION
  Report Type: 
  Country: None (occurrence: None)
  Receive Date: 20110808
  Receipt Date: 20110726
  Transmission Date: 20111222
  Serious: No
  Sender: FDA-Public Use
  Company Number: US-JNJFOC-20110800011

PATIENT
  Sex: Female
  Weight: 58.97 kg

DRUGS (3)
  1. CYMBALTA [Concomitant]
     Route: 048
  2. PREMARIN [Concomitant]
     Route: 048
  3. FENTANYL [Suspect]
     Indication: PAIN
     Route: 062
     Dates: start: 20110101, end: 20110101

REACTIONS (1)
  - WRONG TECHNIQUE IN DRUG USAGE PROCESS [None]
